FAERS Safety Report 5610736-2 (Version None)
Quarter: 2008Q1

REPORT INFORMATION
  Report Type: 
  Country: None (occurrence: None)
  Receive Date: 20080201
  Receipt Date: 20080123
  Transmission Date: 20080703
  Serious: Yes (Hospitalization, Other)
  Sender: FDA-Public Use
  Company Number: US-NOVOPROD-271327

PATIENT
  Age: 7 Year
  Sex: Male
  Weight: 23.6 kg

DRUGS (4)
  1. NORDITROPIN [Suspect]
     Indication: GROWTH HORMONE DEFICIENCY
     Dosage: 1.0 MG 7X A WEEK
     Route: 058
     Dates: start: 20060901
  2. SEROQUEL [Concomitant]
  3. ABILIFY [Concomitant]
  4. CLONIDINE [Concomitant]

REACTIONS (1)
  - CHOLESTEATOMA [None]
